FAERS Safety Report 17057833 (Version 1)
Quarter: 2019Q4

REPORT INFORMATION
  Report Type: Spontaneous
  Country: US (occurrence: US)
  Receive Date: 20191120
  Receipt Date: 20191120
  Transmission Date: 20200122
  Serious: No
  Sender: FDA-Public Use
  Company Number: None

PATIENT
  Age: 30 Month
  Sex: Female
  Weight: 67.5 kg

DRUGS (4)
  1. DEPAKOTE [Concomitant]
     Active Substance: DIVALPROEX SODIUM
  2. LAMICTAL [Concomitant]
     Active Substance: LAMOTRIGINE
  3. AMBIEN [Concomitant]
     Active Substance: ZOLPIDEM TARTRATE
  4. AIMOVIG [Suspect]
     Active Substance: ERENUMAB-AOOE
     Indication: STATUS MIGRAINOSUS
     Dosage: ?          QUANTITY:1 INJECTION(S);OTHER FREQUENCY:ONCE A MONTH;?
     Route: 058
     Dates: start: 20191022

REACTIONS (3)
  - Nausea [None]
  - Vertigo [None]
  - Vomiting [None]
